FAERS Safety Report 21356712 (Version 1)
Quarter: 2022Q3

REPORT INFORMATION
  Report Type: Report from Study
  Country: US (occurrence: US)
  Receive Date: 20220920
  Receipt Date: 20220920
  Transmission Date: 20221027
  Serious: Yes (Hospitalization, Other)
  Sender: FDA-Public Use
  Company Number: US-SEATTLE GENETICS-2022SGN07951

PATIENT
  Age: 68 Year
  Sex: Female

DRUGS (5)
  1. TUCATINIB [Suspect]
     Active Substance: TUCATINIB
     Indication: Breast cancer female
     Dosage: UNK
     Route: 065
  2. TUCATINIB [Suspect]
     Active Substance: TUCATINIB
     Dosage: 300 MG, BID
     Route: 065
     Dates: start: 20220817
  3. TUCATINIB [Suspect]
     Active Substance: TUCATINIB
     Dosage: 600 MG, BID
     Route: 065
     Dates: start: 20220824
  4. TUCATINIB [Suspect]
     Active Substance: TUCATINIB
     Dosage: UNK
     Route: 065
     Dates: start: 20220908
  5. CAPECITABINE [Suspect]
     Active Substance: CAPECITABINE
     Indication: Breast cancer female
     Route: 065

REACTIONS (8)
  - Muscular weakness [Recovering/Resolving]
  - Gait inability [Recovering/Resolving]
  - Thrombosis [Recovering/Resolving]
  - Urinary tract infection [Unknown]
  - Off label use [Unknown]
  - Hypotension [Recovering/Resolving]
  - Blood potassium decreased [Unknown]
  - Nausea [Recovering/Resolving]

NARRATIVE: CASE EVENT DATE: 20220821
